FAERS Safety Report 6343945-8 (Version None)
Quarter: 2009Q3

REPORT INFORMATION
  Report Type: 
  Country: None (occurrence: None)
  Receive Date: 20090908
  Receipt Date: 20090827
  Transmission Date: 20100115
  Serious: Yes (Other)
  Sender: FDA-Public Use
  Company Number: ES-PFIZER INC-2009239757

PATIENT
  Age: 59 Year

DRUGS (3)
  1. AROMASIN [Suspect]
     Dosage: 25 MG, 1X/DAY
     Route: 048
     Dates: start: 20070105
  2. IDALPREM [Suspect]
     Dosage: 5 MG, 1X/DAY
     Route: 048
     Dates: start: 20080513
  3. LANTANON [Suspect]
     Indication: MAJOR DEPRESSION
     Dosage: 30 MG, 1X/DAY
     Route: 048
     Dates: start: 20070402

REACTIONS (2)
  - HEPATIC FUNCTION ABNORMAL [None]
  - OEDEMA [None]
